FAERS Safety Report 13689288 (Version 1)
Quarter: 2017Q2

REPORT INFORMATION
  Report Type: Spontaneous
  Country: US (occurrence: US)
  Receive Date: 20170625
  Receipt Date: 20170625
  Transmission Date: 20170830
  Serious: No
  Sender: FDA-Public Use
  Company Number: None

PATIENT
  Age: 22 Year
  Sex: Female
  Weight: 77.6 kg

DRUGS (1)
  1. NEXPLANON [Suspect]
     Active Substance: ETONOGESTREL
     Indication: CONTRACEPTION
     Dosage: ?          OTHER DOSE:MG;OTHER FREQUENCY:FOR 3 YEARS;?
     Route: 059
     Dates: start: 20151007, end: 20170612

REACTIONS (1)
  - Implant site pruritus [None]

NARRATIVE: CASE EVENT DATE: 20170612
